FAERS Safety Report 6506129-6 (Version None)
Quarter: 2009Q4

REPORT INFORMATION
  Report Type: 
  Country: None (occurrence: None)
  Receive Date: 20091218
  Receipt Date: 20091210
  Transmission Date: 20100525
  Serious: Yes (Other)
  Sender: FDA-Public Use
  Company Number: GB-ELI_LILLY_AND_COMPANY-GB200912002946

PATIENT
  Age: 45 Year
  Sex: Male

DRUGS (2)
  1. BYETTA [Suspect]
     Dosage: 5 UG, 2/D
  2. BYETTA [Suspect]
     Dosage: 10 UG, 2/D

REACTIONS (2)
  - BACK PAIN [None]
  - HAEMATURIA [None]
